FAERS Safety Report 9968746 (Version 1)
Quarter: 2014Q1

REPORT INFORMATION
  Report Type: Report from Study
  Country: US (occurrence: US)
  Receive Date: 20140306
  Receipt Date: 20140306
  Transmission Date: 20141002
  Serious: No
  Sender: FDA-Public Use
  Company Number: US-ABBVIE-13P-163-1140997-00

PATIENT
  Age: 21 Year
  Sex: Male

DRUGS (4)
  1. HUMIRA [Suspect]
     Indication: PSORIASIS
     Dates: start: 201211, end: 201303
  2. HUMIRA [Suspect]
     Dates: start: 20130821, end: 20130821
  3. HUMIRA [Suspect]
  4. CREAM [Concomitant]
     Indication: PSORIASIS

REACTIONS (1)
  - Psoriasis [Recovering/Resolving]
